FAERS Safety Report 17492666 (Version 1)
Quarter: 2020Q1

REPORT INFORMATION
  Report Type: Spontaneous
  Country: CN (occurrence: CN)
  Receive Date: 20200304
  Receipt Date: 20200304
  Transmission Date: 20200409
  Serious: Yes (Hospitalization)
  Sender: FDA-Public Use
  Company Number: CN-ABBVIE-20K-035-3295138-00

PATIENT
  Age: 22 Year
  Sex: Male
  Weight: 71 kg

DRUGS (4)
  1. RIBAVIRIN. [Suspect]
     Active Substance: RIBAVIRIN
     Indication: PNEUMONIA VIRAL
     Route: 041
     Dates: start: 20200208, end: 20200213
  2. RIBAVIRIN. [Suspect]
     Active Substance: RIBAVIRIN
     Indication: CORONA VIRUS INFECTION
  3. ALUVIA 200/50 [Suspect]
     Active Substance: LOPINAVIR\RITONAVIR
     Indication: CORONA VIRUS INFECTION
     Route: 048
     Dates: start: 20200210, end: 20200215
  4. ALUVIA 200/50 [Suspect]
     Active Substance: LOPINAVIR\RITONAVIR
     Indication: PNEUMONIA VIRAL

REACTIONS (4)
  - Nausea [Recovered/Resolved]
  - Hyperbilirubinaemia [Recovered/Resolved]
  - Off label use [Unknown]
  - Therapeutic response unexpected [Unknown]

NARRATIVE: CASE EVENT DATE: 202002
